FAERS Safety Report 7254303-6 (Version None)
Quarter: 2011Q1

REPORT INFORMATION
  Report Type: 
  Country: None (occurrence: None)
  Receive Date: 20110129
  Receipt Date: 20100125
  Transmission Date: 20110831
  Serious: No
  Sender: FDA-Public Use
  Company Number: US-ABBOTT-10P-163-0621978-00

PATIENT
  Sex: Male

DRUGS (2)
  1. HUMIRA [Suspect]
     Dates: start: 20100120
  2. HUMIRA [Suspect]
     Indication: RHEUMATOID ARTHRITIS
     Dates: start: 20091101

REACTIONS (5)
  - OROPHARYNGEAL PAIN [None]
  - PHOTOPHOBIA [None]
  - ASTHENIA [None]
  - DIZZINESS [None]
  - LYMPHADENOPATHY [None]
